FAERS Safety Report 9291244 (Version 1)
Quarter: 2012Q4

REPORT INFORMATION
  Report Type: Spontaneous
  Country: US (occurrence: None)
  Receive Date: 20121105
  Receipt Date: 20121105
  Transmission Date: 20130627
  Serious: Yes (Hospitalization)
  Sender: FDA-Public Use
  Company Number: 134961 1

PATIENT
  Age: 83 Year
  Sex: Male
  Weight: 77 kg

DRUGS (1)
  1. LEUCOVORIN CALCIUM FOR INJ. 50MG - BEDFORD LABS, INC. [Suspect]
     Indication: METASTATIC COLORECTAL CANCER
     Route: 042
     Dates: start: 20120501

REACTIONS (13)
  - Fall [None]
  - Syncope [None]
  - Hand fracture [None]
  - Blood creatine phosphokinase increased [None]
  - White blood cell count decreased [None]
  - Rhabdomyolysis [None]
  - Asthenia [None]
  - Bradycardia [None]
  - Pneumonia [None]
  - Candidiasis [None]
  - Blood sodium decreased [None]
  - Blood potassium decreased [None]
  - Hypothyroidism [None]
